FAERS Safety Report 25585266 (Version 1)
Quarter: 2025Q3

REPORT INFORMATION
  Report Type: Spontaneous
  Country: HK (occurrence: HK)
  Receive Date: 20250721
  Receipt Date: 20250721
  Transmission Date: 20251020
  Serious: Yes (Other)
  Sender: Unknown Manufacturer
  Company Number: HK-STRIDES ARCOLAB LIMITED-2025OS000133

PATIENT
  Age: 11 Year
  Sex: Male

DRUGS (12)
  1. ETOPOSIDE [Suspect]
     Active Substance: ETOPOSIDE
     Indication: T-cell type acute leukaemia
     Route: 065
  2. BORTEZOMIB [Suspect]
     Active Substance: BORTEZOMIB
     Indication: T-cell type acute leukaemia
     Route: 065
  3. DEXAMETHASONE [Suspect]
     Active Substance: DEXAMETHASONE
     Indication: T-cell type acute leukaemia
     Route: 065
  4. DEXAMETHASONE [Suspect]
     Active Substance: DEXAMETHASONE
     Route: 065
  5. MITOXANTRONE [Suspect]
     Active Substance: MITOXANTRONE HYDROCHLORIDE
     Indication: T-cell type acute leukaemia
     Route: 065
  6. VINORELBINE [Suspect]
     Active Substance: VINORELBINE TARTRATE
     Indication: T-cell type acute leukaemia
     Route: 065
  7. VINCRISTINE [Concomitant]
     Active Substance: VINCRISTINE
     Indication: T-cell type acute leukaemia
     Route: 065
  8. DAUNORUBICIN [Concomitant]
     Active Substance: DAUNORUBICIN
     Indication: T-cell type acute leukaemia
     Route: 065
  9. PEG/L-ASPARAGINASE [Concomitant]
     Active Substance: PEGASPARGASE
     Indication: T-cell type acute leukaemia
     Route: 065
  10. CYCLOPHOSPHAMIDE [Concomitant]
     Active Substance: CYCLOPHOSPHAMIDE
     Indication: T-cell type acute leukaemia
     Route: 065
  11. CYTARABINE [Concomitant]
     Active Substance: CYTARABINE
     Indication: T-cell type acute leukaemia
     Route: 065
  12. MERCAPTOPURINE [Concomitant]
     Active Substance: MERCAPTOPURINE
     Indication: T-cell type acute leukaemia
     Route: 065

REACTIONS (2)
  - Neoplasm progression [Unknown]
  - Off label use [Unknown]
